FAERS Safety Report 25649908 (Version 1)
Quarter: 2025Q3

REPORT INFORMATION
  Report Type: Spontaneous
  Country: US (occurrence: None)
  Receive Date: 20250805
  Receipt Date: 20250805
  Transmission Date: 20251021
  Serious: Yes (Other)
  Sender: FDA-CTU
  Company Number: None

PATIENT
  Age: 49 Year
  Sex: Female

DRUGS (1)
  1. BIMZELX [Suspect]
     Active Substance: BIMEKIZUMAB-BKZX
     Indication: Plasma cell myeloma

REACTIONS (5)
  - Adverse drug reaction [None]
  - Pain [None]
  - Fatigue [None]
  - Oropharyngeal pain [None]
  - Therapy non-responder [None]

NARRATIVE: CASE EVENT DATE: 20250729
